FAERS Safety Report 9536051 (Version 2)
Quarter: 2013Q3

REPORT INFORMATION
  Report Type: Spontaneous
  Country: US (occurrence: US)
  Receive Date: 20130919
  Receipt Date: 20130919
  Transmission Date: 20140515
  Serious: No
  Sender: FDA-Public Use
  Company Number: US-PFIZER INC-2013263999

PATIENT
  Age: 61 Year
  Sex: Female
  Weight: 71.66 kg

DRUGS (7)
  1. NORVASC [Suspect]
     Indication: HYPERTENSION
     Dosage: 5 MG, 1X/DAY
  2. NEURONTIN [Suspect]
     Indication: NEUROPATHY PERIPHERAL
     Dosage: UNK
     Dates: start: 2012
  3. NEURONTIN [Suspect]
     Indication: BACK PAIN
     Dosage: 300 MG, 5X/DAY
     Dates: start: 2013
  4. NEURONTIN [Suspect]
     Dosage: 300 MG, 3X/DAY
     Dates: start: 2013, end: 2013
  5. ZOLOFT [Suspect]
     Indication: ANXIETY
     Dosage: 1.5 DF, 1X/DAY
     Route: 048
  6. HYDROCODONE [Suspect]
     Indication: BREAKTHROUGH PAIN
     Dosage: 10 MG, 6X/DAY
  7. OXYCONTIN [Suspect]
     Indication: BACK PAIN
     Dosage: 20 MG, 3X/DAY

REACTIONS (4)
  - Weight increased [Unknown]
  - Hyponatraemia [Unknown]
  - Blood potassium increased [Unknown]
  - Blood pressure inadequately controlled [Unknown]
